FAERS Safety Report 11343045 (Version 1)
Quarter: 2015Q3

REPORT INFORMATION
  Report Type: Other
  Country: None (occurrence: US)
  Receive Date: 20150805
  Receipt Date: 20150805
  Transmission Date: 20151125
  Serious: No
  Sender: FDA-Public Use
  Company Number: US-ANACOR-2015ANA00053

PATIENT
  Sex: Female

DRUGS (1)
  1. KERYDIN [Suspect]
     Active Substance: TAVABOROLE
     Dosage: UNK
     Dates: start: 20150223, end: 20150225

REACTIONS (6)
  - Nail discolouration [Unknown]
  - Onychomadesis [Unknown]
  - Application site irritation [Unknown]
  - Abdominal pain upper [Unknown]
  - Abdominal pain [Unknown]
  - Syncope [Unknown]

NARRATIVE: CASE EVENT DATE: 2015
